FAERS Safety Report 18842564 (Version 2)
Quarter: 2021Q2

REPORT INFORMATION
  Report Type: Spontaneous
  Country: US (occurrence: US)
  Receive Date: 20210203
  Receipt Date: 20210610
  Transmission Date: 20210717
  Serious: No
  Sender: FDA-Public Use
  Company Number: US-GALDERMA-US2020007499

PATIENT
  Age: 69 Year
  Sex: Female

DRUGS (5)
  1. OIL OF OLAY CLEANSER [Concomitant]
     Indication: PRODUCT USED FOR UNKNOWN INDICATION
     Route: 065
  2. METROGEL [Suspect]
     Active Substance: METRONIDAZOLE
     Dosage: 0.75%
     Route: 061
     Dates: start: 202002
  3. SOOLANTRA [Suspect]
     Active Substance: IVERMECTIN
     Indication: ROSACEA
     Dosage: 1%
     Route: 061
     Dates: start: 202002, end: 202002
  4. METROGEL [Suspect]
     Active Substance: METRONIDAZOLE
     Indication: ROSACEA
     Dosage: 0.75%
     Route: 061
     Dates: start: 2019, end: 2019
  5. OIL OF OLAY MOISTURIZER [Concomitant]
     Indication: PRODUCT USED FOR UNKNOWN INDICATION
     Route: 065

REACTIONS (3)
  - Skin burning sensation [Not Recovered/Not Resolved]
  - Erythema [Not Recovered/Not Resolved]
  - Pain of skin [Not Recovered/Not Resolved]

NARRATIVE: CASE EVENT DATE: 202002
